FAERS Safety Report 8983044 (Version 1)
Quarter: 2012Q4

REPORT INFORMATION
  Report Type: 
  Country: US (occurrence: US)
  Receive Date: 20121221
  Receipt Date: 20121221
  Transmission Date: 20130627
  Serious: Yes (Hospitalization)
  Sender: FDA-Public Use
  Company Number: US-B.I. PHARMACEUTICALS,INC./RIDGEFIELD-2012-BI-03649BP

PATIENT
  Age: 80 None
  Sex: Male
  Weight: 82 kg

DRUGS (5)
  1. FLOMAX CAPSULES [Suspect]
     Indication: PROSTATE CANCER
     Dosage: 0.8 mg
     Route: 048
     Dates: start: 2001
  2. PRADAXA [Suspect]
     Indication: ATRIAL FIBRILLATION
     Dosage: 300 mg
     Route: 048
     Dates: start: 20121114
  3. ASPIRIN [Concomitant]
     Indication: HEART RATE IRREGULAR
     Dosage: 81 mg
     Route: 048
     Dates: start: 2001
  4. SIMVASTATIN [Concomitant]
     Indication: BLOOD CHOLESTEROL INCREASED
     Dosage: 20 mg
     Route: 048
     Dates: start: 2005
  5. TOPROL [Concomitant]
     Indication: HEART RATE IRREGULAR
     Dosage: 50 mg
     Route: 048
     Dates: start: 2001

REACTIONS (3)
  - Cerebrovascular accident [Recovered/Resolved]
  - Irritable bowel syndrome [Recovered/Resolved]
  - Dysgeusia [Not Recovered/Not Resolved]
